FAERS Safety Report 8837096 (Version 1)
Quarter: 2012Q4

REPORT INFORMATION
  Report Type: 
  Country: BE (occurrence: BE)
  Receive Date: 20121012
  Receipt Date: 20121012
  Transmission Date: 20130627
  Serious: Yes (Other)
  Sender: FDA-Public Use
  Company Number: BE-SANOFI-AVENTIS-2012SA073384

PATIENT
  Age: 74 Year
  Sex: Female

DRUGS (21)
  1. TAXOTERE [Suspect]
     Indication: BREAST CANCER
     Dosage: form: vial
dose: 100mg/m2
     Route: 042
     Dates: start: 20120202
  2. TAXOL [Suspect]
     Indication: DRUG USE FOR UNKNOWN INDICATION
     Dosage: dose: 60 mg/m2
     Route: 065
     Dates: start: 201202
  3. ELTHYRONE [Concomitant]
  4. GLUCOPHAGE [Concomitant]
  5. NOVONORM [Concomitant]
  6. VASEXTEN [Concomitant]
  7. SIMVASTATIN [Concomitant]
  8. LORMETAZEPAM [Concomitant]
  9. TRITACE [Concomitant]
  10. NOVOMIX [Concomitant]
     Dosage: 14-15 U (100.00uml)
  11. MOVICOL [Concomitant]
     Dosage: 2 sachets daily
  12. TAVANIC [Concomitant]
  13. NEULASTA [Concomitant]
  14. ARANESP [Concomitant]
  15. SUCROSE [Concomitant]
  16. TAMOXIFEN CITRATE [Concomitant]
  17. THERAPEUTIC RADIOPHARMACEUTICALS [Concomitant]
  18. CYCLOPHOSPHAMIDE [Concomitant]
     Route: 042
     Dates: start: 20111110
  19. EPIRUBICINE [Concomitant]
     Route: 042
     Dates: start: 20111110
  20. FLUOROURACIL [Concomitant]
     Route: 042
     Dates: start: 20111110
  21. INSULIN [Concomitant]
     Indication: TYPE 2 DIABETES MELLITUS

REACTIONS (12)
  - Vaginal haemorrhage [Recovered/Resolved]
  - Oral disorder [Recovered/Resolved]
  - Nausea [Recovered/Resolved]
  - Cystitis [Recovered/Resolved]
  - Vomiting [Recovered/Resolved]
  - Decreased appetite [Recovered/Resolved]
  - Chest pain [Recovered/Resolved]
  - Myalgia [Recovered/Resolved]
  - Dysgeusia [Recovered/Resolved]
  - Diarrhoea [Recovered/Resolved]
  - Mucosal inflammation [Recovered/Resolved]
  - Epistaxis [Recovered/Resolved]
